FAERS Safety Report 5152952-2 (Version None)
Quarter: 2006Q4

REPORT INFORMATION
  Report Type: 
  Country: None (occurrence: None)
  Receive Date: 20061114
  Receipt Date: 20061114
  Transmission Date: 20070319
  Serious: Yes (Hospitalization)
  Sender: FDA-Public Use
  Company Number: None

PATIENT
  Age: 77 Year
  Sex: Male
  Weight: 74 kg

DRUGS (11)
  1. GEMCITABINE [Suspect]
     Indication: ADENOCARCINOMA
     Dosage: ONCE WEEKLY IV
     Route: 042
     Dates: start: 20061018, end: 20061025
  2. GEMCITABINE [Suspect]
     Indication: METASTATIC NEOPLASM
     Dosage: ONCE WEEKLY IV
     Route: 042
     Dates: start: 20061018, end: 20061025
  3. TORSEMIDE [Concomitant]
  4. MEGACE [Concomitant]
  5. LISINOPRIL [Concomitant]
  6. COUMADIN [Concomitant]
  7. KEPPRA [Concomitant]
  8. TOPROL-XL [Concomitant]
  9. CELEXA [Concomitant]
  10. K-DUR 10 [Concomitant]
  11. ELIGARD [Concomitant]

REACTIONS (10)
  - BLOOD PRESSURE SYSTOLIC INCREASED [None]
  - BODY TEMPERATURE DECREASED [None]
  - DYSPNOEA [None]
  - HEART RATE INCREASED [None]
  - MYALGIA [None]
  - OXYGEN SATURATION DECREASED [None]
  - RASH [None]
  - RASH MACULAR [None]
  - TRANSAMINASES INCREASED [None]
  - WHEEZING [None]
